FAERS Safety Report 21395378 (Version 1)
Quarter: 2022Q3

REPORT INFORMATION
  Report Type: Report from Study
  Country: US (occurrence: US)
  Receive Date: 20220930
  Receipt Date: 20220930
  Transmission Date: 20221026
  Serious: Yes (Death)
  Sender: FDA-Public Use
  Company Number: US-TAIHO-2022-001008

PATIENT
  Age: 43 Year
  Sex: Male
  Weight: 51.26 kg

DRUGS (1)
  1. LONSURF [Suspect]
     Active Substance: TIPIRACIL HYDROCHLORIDE\TRIFLURIDINE
     Indication: Rectal cancer
     Dosage: CYCLE UNKNOWN
     Route: 048

REACTIONS (1)
  - Death [Fatal]

NARRATIVE: CASE EVENT DATE: 20220920
